FAERS Safety Report 6933825-9 (Version None)
Quarter: 2010Q3

REPORT INFORMATION
  Report Type: 
  Country: None (occurrence: None)
  Receive Date: 20100820
  Receipt Date: 20100809
  Transmission Date: 20110219
  Serious: Yes (Other)
  Sender: FDA-Public Use
  Company Number: US-PFIZER INC-2010100584

PATIENT
  Sex: Female
  Weight: 49.887 kg

DRUGS (2)
  1. TOVIAZ [Suspect]
     Indication: HYPERTONIC BLADDER
     Dosage: 4 MG, DAILY
     Route: 048
     Dates: start: 20100701
  2. CALCIUM [Concomitant]
     Dosage: UNK

REACTIONS (2)
  - DRY EYE [None]
  - EYE IRRITATION [None]
